FAERS Safety Report 5007993-2 (Version None)
Quarter: 2006Q2

REPORT INFORMATION
  Report Type: 
  Country: None (occurrence: None)
  Receive Date: 20060517
  Receipt Date: 20060503
  Transmission Date: 20061013
  Serious: Yes (Disabling)
  Sender: FDA-Public Use
  Company Number: 200604773

PATIENT
  Age: 46 Year
  Sex: Female

DRUGS (6)
  1. DYSPORT (BOTILINUM TOXIN TYPE A ) POWDER FOR INJECTION [Suspect]
     Dosage: 200 UNITS SINGLE
  2. LANTUS [Concomitant]
  3. BONIVA [Concomitant]
  4. CALCIUM GLUCONATE [Concomitant]
  5. HUMULIN I (INSULIN HUMAN INJECTION, ISOPHANE) [Concomitant]
  6. HUMULIN S (INSULIN HUMAN) [Concomitant]

REACTIONS (13)
  - ABDOMINAL PAIN UPPER [None]
  - BLISTER [None]
  - CHROMATURIA [None]
  - DIARRHOEA [None]
  - DIZZINESS [None]
  - ERYTHEMA [None]
  - HEADACHE [None]
  - INJECTION SITE PAIN [None]
  - MYALGIA [None]
  - NAUSEA [None]
  - PALPITATIONS [None]
  - SKIN LESION [None]
  - URTICARIA [None]
